FAERS Safety Report 7264941-2 (Version None)
Quarter: 2011Q1

REPORT INFORMATION
  Report Type: 
  Country: None (occurrence: None)
  Receive Date: 20110131
  Receipt Date: 20110120
  Transmission Date: 20110831
  Serious: Yes (Hospitalization, Other)
  Sender: FDA-Public Use
  Company Number: US-BAYER-US-2007-017656

PATIENT
  Sex: Male

DRUGS (13)
  1. GABAPENTIN [Concomitant]
  2. CARVEDILOL [Concomitant]
  3. SIMVASTATIN [Concomitant]
  4. LISINOPRIL [Concomitant]
  5. BETASERON [Suspect]
     Dosage: UNK
     Route: 058
     Dates: start: 20080918, end: 20091201
  6. CHLOZOXINE [Concomitant]
  7. HYDROCHLOROTHIAZIDE [Concomitant]
  8. PLAVIX [Concomitant]
  9. BETASERON [Suspect]
     Indication: PROGRESSIVE RELAPSING MULTIPLE SCLEROSIS
     Dosage: 8 MIU, EVERY 2D
     Route: 058
     Dates: start: 20030507, end: 20070701
  10. BETASERON [Suspect]
     Dosage: 8 MIU, QOD
     Route: 058
     Dates: start: 20100816
  11. UNCODEABLE ^UNCLASSIFIABLE^ [Concomitant]
     Dosage: 4000 IU, QD
  12. ASPIRIN [Concomitant]
     Indication: PAIN
     Dosage: 325 MG, QD
  13. ACETAMINOPHEN [Concomitant]
     Indication: PAIN

REACTIONS (15)
  - HEADACHE [None]
  - PRODUCT QUALITY ISSUE [None]
  - GINGIVAL INFECTION [None]
  - TOOTH LOSS [None]
  - INJECTION SITE HAEMATOMA [None]
  - CHEST PAIN [None]
  - BRONCHIAL IRRITATION [None]
  - CORONARY ARTERY OCCLUSION [None]
  - CONTUSION [None]
  - TOOTH EXTRACTION [None]
  - INJECTION SITE PAIN [None]
  - CARDIAC DISORDER [None]
  - PAIN [None]
  - CHILLS [None]
  - DEPRESSION [None]
